FAERS Safety Report 24162188 (Version 1)
Quarter: 2024Q3

REPORT INFORMATION
  Report Type: Spontaneous
  Country: US (occurrence: None)
  Receive Date: 20240731
  Receipt Date: 20240731
  Transmission Date: 20241017
  Serious: Yes (Hospitalization)
  Sender: Public
  Company Number: None

PATIENT
  Age: 68 Year
  Sex: Female

DRUGS (10)
  1. AMBRISENTAN [Suspect]
     Active Substance: AMBRISENTAN
     Indication: Pulmonary hypertension
     Dosage: FREQUENCY : DAILY;?
     Route: 048
     Dates: start: 20230914
  2. SILDENAFIL [Concomitant]
  3. ATORVASTATIN [Concomitant]
  4. ATENOLOL [Concomitant]
     Active Substance: ATENOLOL
  5. WARFARIN [Concomitant]
     Active Substance: WARFARIN
  6. FUROSEMIDE [Concomitant]
     Active Substance: FUROSEMIDE
  7. POTASSIUM CHLORIDE [Concomitant]
  8. TRAZODONE [Concomitant]
  9. NORCO [Concomitant]
  10. LEVOTHYROXINE [Concomitant]

REACTIONS (3)
  - Fall [None]
  - Subdural haematoma [None]
  - Deep vein thrombosis [None]

NARRATIVE: CASE EVENT DATE: 20240522
